FAERS Safety Report 8543678-3 (Version None)
Quarter: 2012Q3

REPORT INFORMATION
  Report Type: 
  Country: None (occurrence: None)
  Receive Date: 20120719
  Receipt Date: 20120719
  Transmission Date: 20120928
  Serious: Yes (Hospitalization, Other)
  Sender: FDA-Public Use
  Company Number: None

PATIENT
  Age: 81 Year
  Sex: Female
  Weight: 56.6996 kg

DRUGS (2)
  1. . [Concomitant]
  2. FOSAMAX [Suspect]
     Indication: OSTEOPENIA
     Dates: start: 20090201, end: 20120630

REACTIONS (2)
  - MYELODYSPLASTIC SYNDROME [None]
  - ACUTE MYELOID LEUKAEMIA [None]
